FAERS Safety Report 7044163-0 (Version None)
Quarter: 2010Q4

REPORT INFORMATION
  Report Type: 
  Country: None (occurrence: None)
  Receive Date: 20101013
  Receipt Date: 20101013
  Transmission Date: 20110411
  Serious: Yes (Hospitalization)
  Sender: FDA-Public Use
  Company Number: US-PFIZER INC-2010124911

PATIENT

DRUGS (1)
  1. ZYVOX [Suspect]

REACTIONS (2)
  - LEUKOPENIA [None]
  - NEUTROPENIA [None]
